FAERS Safety Report 6059148-0 (Version None)
Quarter: 2009Q1

REPORT INFORMATION
  Report Type: 
  Country: None (occurrence: None)
  Receive Date: 20090127
  Receipt Date: 20090127
  Transmission Date: 20090719
  Serious: No
  Sender: FDA-Public Use
  Company Number: None

PATIENT
  Age: 26 Year
  Sex: Male
  Weight: 82.5547 kg

DRUGS (1)
  1. LEXAPRO [Suspect]
     Indication: DEPRESSION
     Dosage: 10MG 1 DAILY PO
     Route: 048
     Dates: start: 20061020, end: 20061022

REACTIONS (9)
  - ANAESTHESIA [None]
  - ANHEDONIA [None]
  - ANORGASMIA [None]
  - CONDITION AGGRAVATED [None]
  - DEPRESSION [None]
  - EJACULATION DELAYED [None]
  - EJACULATION DISORDER [None]
  - GENITAL DISORDER MALE [None]
  - LIBIDO DECREASED [None]
